FAERS Safety Report 12673842 (Version 5)
Quarter: 2016Q4

REPORT INFORMATION
  Report Type: Report from Study
  Country: US (occurrence: US)
  Receive Date: 20160822
  Receipt Date: 20161027
  Transmission Date: 20170207
  Serious: Yes (Other)
  Sender: FDA-Public Use
  Company Number: US-BIOGEN-2016BI00251677

PATIENT
  Age: 56 Year
  Sex: Male

DRUGS (7)
  1. TECFIDERA [Suspect]
     Active Substance: DIMETHYL FUMARATE
     Dosage: OFF TECFIDERA FROM MAY 2016 TO JUL 2016 AND RESUMED ON 01AUG2016
     Route: 065
     Dates: start: 201305
  2. BABY ASA [Concomitant]
     Active Substance: ASPIRIN
     Indication: CARDIAC DISORDER
     Route: 065
  3. TECFIDERA [Suspect]
     Active Substance: DIMETHYL FUMARATE
     Indication: MULTIPLE SCLEROSIS
     Route: 048
     Dates: start: 20150920, end: 20160607
  4. TECFIDERA [Suspect]
     Active Substance: DIMETHYL FUMARATE
     Route: 048
     Dates: start: 20160804
  5. TECFIDERA [Suspect]
     Active Substance: DIMETHYL FUMARATE
     Route: 048
     Dates: start: 20160801, end: 20160803
  6. TECFIDERA [Suspect]
     Active Substance: DIMETHYL FUMARATE
     Dosage: OFF TECFIDERA FROM MAY 2016 TO JUL 2016 AND RESUMED ON 01AUG2016
     Route: 065
     Dates: end: 201605
  7. TECFIDERA [Suspect]
     Active Substance: DIMETHYL FUMARATE
     Route: 048
     Dates: start: 20140812, end: 20150920

REACTIONS (10)
  - Intentional overdose [Recovered/Resolved]
  - Weight decreased [Unknown]
  - Decreased appetite [Unknown]
  - Gastrointestinal pain [Unknown]
  - Diarrhoea [Recovered/Resolved]
  - Constipation [Recovered/Resolved]
  - Drug dose omission [Recovered/Resolved]
  - Flushing [Not Recovered/Not Resolved]
  - Jaw disorder [Unknown]
  - Tooth extraction [Unknown]

NARRATIVE: CASE EVENT DATE: 2016
